FAERS Safety Report 8947798 (Version 2)
Quarter: 2013Q1

REPORT INFORMATION
  Report Type: Spontaneous
  Country: US (occurrence: None)
  Receive Date: 20121127
  Receipt Date: 20121214
  Transmission Date: 20140127
  Serious: Yes (Hospitalization, Disabling)
  Sender: FDA-Public Use
  Company Number: 200152355-AKO-5137A

PATIENT
  Age: 72 Year
  Sex: Male

DRUGS (11)
  1. MIDAZOLAM [Suspect]
     Indication: ANALGESIC THERAPY
     Dosage: OT
     Route: 042
     Dates: start: 20121109, end: 20121109
  2. FENTANYL [Suspect]
     Indication: ANALGESIC THERAPY
     Dosage: OT
     Route: 042
     Dates: start: 20121109, end: 20121109
  3. CELLCEPT [Concomitant]
  4. PREDNISONE [Concomitant]
  5. MYCELEX [Concomitant]
  6. VALCYTE [Concomitant]
  7. VFEND [Concomitant]
  8. ZITHROMAX [Concomitant]
  9. OMEPRAZOLE [Concomitant]
  10. MULTIVITAMIN [Concomitant]
  11. MAGOX [Concomitant]

REACTIONS (2)
  - Aphasia [None]
  - Hemiplegia [None]
